FAERS Safety Report 11788656 (Version 1)
Quarter: 2015Q4

REPORT INFORMATION
  Report Type: Report from Study
  Country: US (occurrence: US)
  Receive Date: 20151201
  Receipt Date: 20151201
  Transmission Date: 20160305
  Serious: Yes (Death, Hospitalization, Other)
  Sender: FDA-Public Use
  Company Number: US-ROCHE-1667065

PATIENT
  Age: 51 Year

DRUGS (2)
  1. BEVACIZUMAB [Suspect]
     Active Substance: BEVACIZUMAB
     Indication: BREAST CANCER METASTATIC
     Dosage: 10 MG/KG OVER 30 TO 90 MIN ON DAYS 1 AND 15.?LAST DOSE PRIOR TO SERIOUS ADVERSE EVENT: 16/DEC/2009
     Route: 042
     Dates: start: 20091202
  2. NAB-PACLITAXEL [Suspect]
     Active Substance: PACLITAXEL
     Indication: BREAST CANCER METASTATIC
     Dosage: 150 MG/M2 OVER 30 MIN ON DAYS 1, 8 AND 15
     Route: 042
     Dates: start: 20091202

REACTIONS (3)
  - Urinary incontinence [Fatal]
  - Diarrhoea [Fatal]
  - Dyspnoea [Unknown]

NARRATIVE: CASE EVENT DATE: 20091218
